FAERS Safety Report 20080777 (Version 1)
Quarter: 2021Q4

REPORT INFORMATION
  Report Type: Report from Study
  Country: US (occurrence: None)
  Receive Date: 20211117
  Receipt Date: 20211117
  Transmission Date: 20220303
  Serious: Yes (Hospitalization)
  Sender: FDA-Public Use
  Company Number: US-ROCHE-2926876

PATIENT
  Age: 82 Year
  Sex: Male
  Weight: 86.7 kg

DRUGS (3)
  1. VENETOCLAX [Suspect]
     Active Substance: VENETOCLAX
     Indication: Chronic lymphocytic leukaemia
     Dosage: LAST ADMINISTERED DATE: 16/SEP/2021?DAYS 1-7 CYCLE 3?TOTAL DOSE ADMINISTERED THIS COURSE (DOSE): 520
     Route: 048
     Dates: start: 20210520
  2. OBINUTUZUMAB [Suspect]
     Active Substance: OBINUTUZUMAB
     Indication: Chronic lymphocytic leukaemia
     Dosage: 100 MG IV ON C1D1, 900 MG IV ON C1D2, 1000 MG IV ON C1D8 + C1D15, C2-6D1?LAST ADMINISTERED DATE: 03/
     Route: 042
     Dates: start: 20210520
  3. IBRUTINIB [Suspect]
     Active Substance: IBRUTINIB
     Indication: Chronic lymphocytic leukaemia
     Dosage: LAST ADMINISTERED DATE: 16/SEP/2021?FOR 15 CYCLES?TOTAL DOSE ADMINISTERED THIS COURSE (DOSE): 5460 M
     Route: 048
     Dates: start: 20210520

REACTIONS (1)
  - Pericardial effusion [Recovering/Resolving]

NARRATIVE: CASE EVENT DATE: 20210917
